FAERS Safety Report 15544851 (Version 1)
Quarter: 2018Q4

REPORT INFORMATION
  Report Type: Report from Study
  Country: None (occurrence: US)
  Receive Date: 20181024
  Receipt Date: 20181024
  Transmission Date: 20190205
  Serious: Yes (Hospitalization, Other)
  Sender: FDA-Public Use
  Company Number: US-ABBVIE-18K-163-2523346-00

PATIENT
  Age: 53 Year
  Sex: Female

DRUGS (2)
  1. HUMIRA [Suspect]
     Active Substance: ADALIMUMAB
     Indication: COLITIS ULCERATIVE
  2. HUMIRA [Suspect]
     Active Substance: ADALIMUMAB
     Indication: RHEUMATOID ARTHRITIS
     Route: 058
     Dates: end: 20181013

REACTIONS (10)
  - Foot operation [Recovered/Resolved]
  - Urinary retention [Unknown]
  - Haemorrhoids [Recovered/Resolved]
  - Hysterectomy [Recovered/Resolved]
  - Pulmonary mass [Unknown]
  - Urinary retention [Recovered/Resolved]
  - Tongue ulceration [Recovered/Resolved]
  - Lipoma [Unknown]
  - Gallbladder operation [Recovered/Resolved]
  - Influenza [Recovered/Resolved]

NARRATIVE: CASE EVENT DATE: 2017
